FAERS Safety Report 4414405-6 (Version None)
Quarter: 2004Q3

REPORT INFORMATION
  Report Type: 
  Country: None (occurrence: None)
  Receive Date: 20040701
  Receipt Date: 20031111
  Transmission Date: 20050211
  Serious: Yes (Death)
  Sender: FDA-Public Use
  Company Number: VISP-PR-0311S-0342(0)

PATIENT
  Age: 75 Year
  Sex: Female

DRUGS (3)
  1. VISIPAQUE [Suspect]
     Indication: ARTERIOGRAM CORONARY
     Dosage: 175 ML, SINGLE DOSE, I.A.
     Dates: start: 20031007, end: 20031007
  2. HEXABRIX [Concomitant]
  3. OPTIRAY 160 [Concomitant]

REACTIONS (3)
  - DYSPNOEA [None]
  - HYPERTENSION [None]
  - HYPOTENSION [None]
